FAERS Safety Report 7629371-X (Version None)
Quarter: 2011Q3

REPORT INFORMATION
  Report Type: 
  Country: None (occurrence: None)
  Receive Date: 20110722
  Receipt Date: 20110712
  Transmission Date: 20111222
  Serious: Yes (Other)
  Sender: FDA-Public Use
  Company Number: DE-JNJFOC-20110612836

PATIENT
  Sex: Male
  Weight: 99 kg

DRUGS (7)
  1. USTEKINUMAB [Suspect]
     Route: 058
     Dates: start: 20090519, end: 20101109
  2. ETANERCEPT [Suspect]
     Indication: PSORIASIS
     Route: 058
     Dates: start: 20070701, end: 20090201
  3. USTEKINUMAB [Suspect]
     Indication: PSORIASIS
     Route: 058
     Dates: start: 20090420, end: 20090519
  4. ALLOPURINOL [Concomitant]
     Route: 048
  5. LEVOTHYROXINE SODIUM [Concomitant]
     Route: 048
  6. PENTAERYTHRITOL TETRANITRATE [Concomitant]
  7. RAMIPRIL [Concomitant]
     Dosage: 5/12.5
     Route: 048

REACTIONS (1)
  - B-CELL LYMPHOMA [None]
